FAERS Safety Report 20600781 (Version 1)
Quarter: 2022Q1

REPORT INFORMATION
  Report Type: Spontaneous
  Country: US (occurrence: US)
  Receive Date: 20220316
  Receipt Date: 20220316
  Transmission Date: 20220423
  Serious: Yes (Other)
  Sender: FDA-Public Use
  Company Number: US-SA-SAC20220314000916

PATIENT
  Age: 72 Year
  Sex: Female

DRUGS (1)
  1. ZANTAC [Suspect]
     Active Substance: RANITIDINE HYDROCHLORIDE
     Indication: Dyspepsia
     Dosage: UNK UNK, QD
     Route: 065
     Dates: start: 199501, end: 200701

REACTIONS (6)
  - Colorectal cancer stage III [Unknown]
  - Gastrointestinal carcinoma [Unknown]
  - Hepatic cancer stage III [Unknown]
  - Gastric cancer stage III [Unknown]
  - Small intestine carcinoma stage III [Unknown]
  - Gallbladder cancer stage III [Unknown]

NARRATIVE: CASE EVENT DATE: 20080101
